FAERS Safety Report 17769359 (Version 1)
Quarter: 2020Q2

REPORT INFORMATION
  Report Type: Report from Study
  Country: None (occurrence: US)
  Receive Date: 20200512
  Receipt Date: 20200512
  Transmission Date: 20200714
  Serious: No
  Sender: FDA-Public Use
  Company Number: US-BIOVITRUM-2019US0808

PATIENT
  Age: 4 Year
  Sex: Female
  Weight: 16 kg

DRUGS (15)
  1. VITAMIN B COMPLEX [Concomitant]
     Active Substance: CYANOCOBALAMIN\DEXPANTHENOL\NIACINAMIDE\PYRIDOXINE HYDROCHLORIDE\RIBOFLAVIN 5^-PHOSPHATE SODIUM\THIAMINE HYDROCHLORIDE\VITAMIN B COMPLEX
     Route: 048
     Dates: start: 20180407
  2. KINERET [Suspect]
     Active Substance: ANAKINRA
     Dosage: 7.46 MG DAILY
     Route: 058
     Dates: start: 20140516
  3. PREDNISOLONE. [Concomitant]
     Active Substance: PREDNISOLONE
     Dosage: 1.8 MG DAILY
     Dates: start: 20140501, end: 20140717
  4. KINERET [Suspect]
     Active Substance: ANAKINRA
     Dosage: 23.88 MG DAILY
     Route: 058
     Dates: start: 20150629
  5. KINERET [Suspect]
     Active Substance: ANAKINRA
     Dosage: 9.33 MG DAILY
     Route: 058
     Dates: start: 20140604
  6. KINERET [Suspect]
     Active Substance: ANAKINRA
     Dosage: 47 MG/DAY
     Route: 058
     Dates: start: 20180607
  7. KINERET [Suspect]
     Active Substance: ANAKINRA
     Dosage: 7.46 MG DAILY
     Route: 058
     Dates: start: 20140530
  8. KINERET [Suspect]
     Active Substance: ANAKINRA
     Dosage: 10.45 MG DAILY
     Route: 058
     Dates: start: 20140717
  9. KINERET [Suspect]
     Active Substance: ANAKINRA
     Dosage: 13.73 MG DAILY
     Route: 058
     Dates: start: 20140804
  10. KINERET [Suspect]
     Active Substance: ANAKINRA
     Dosage: 14.93 MG DAILY
     Route: 058
     Dates: start: 20141030
  11. KINERET [Suspect]
     Active Substance: ANAKINRA
     Indication: DEFICIENCY OF THE INTERLEUKIN-1 RECEPTOR ANTAGONIST
     Dosage: 3.0 MG/KG/DAY, QD; DAILY DOSE 6.6 MG
     Route: 058
     Dates: start: 20140501
  12. KINERET [Suspect]
     Active Substance: ANAKINRA
     Dosage: 14.93 MG DAILY
     Route: 058
     Dates: start: 20140511
  13. KINERET [Suspect]
     Active Substance: ANAKINRA
     Dosage: 5.6 MG DAILY
     Route: 058
     Dates: start: 20140526
  14. KINERET [Suspect]
     Active Substance: ANAKINRA
     Dosage: 38 MG/DAY
     Route: 058
     Dates: start: 20170724
  15. MULTIVITAMIN [Concomitant]
     Active Substance: VITAMINS
     Dosage: 2.5 ML 4 IN 1 DAY
     Route: 048
     Dates: start: 20170524

REACTIONS (3)
  - Gastroenteritis [Recovered/Resolved]
  - Upper respiratory tract infection [Recovered/Resolved]
  - Tooth infection [Recovered/Resolved]

NARRATIVE: CASE EVENT DATE: 20180115
